FAERS Safety Report 7338276-3 (Version None)
Quarter: 2011Q1

REPORT INFORMATION
  Report Type: 
  Country: None (occurrence: None)
  Receive Date: 20110308
  Receipt Date: 20110303
  Transmission Date: 20110831
  Serious: Yes (Other)
  Sender: FDA-Public Use
  Company Number: JP-PFIZER INC-2011046965

PATIENT
  Age: 43 Year
  Sex: Female

DRUGS (3)
  1. BUFFERIN [Concomitant]
  2. LIPITOR [Suspect]
     Dosage: UNK
     Route: 048
  3. FLAVITAN [Concomitant]

REACTIONS (1)
  - CATARACT [None]
